FAERS Safety Report 13803579 (Version 1)
Quarter: 2017Q3

REPORT INFORMATION
  Report Type: Spontaneous
  Country: US (occurrence: US)
  Receive Date: 20170728
  Receipt Date: 20170728
  Transmission Date: 20171127
  Serious: No
  Sender: FDA-Public Use
  Company Number: US-TEVA-778817USA

PATIENT
  Sex: Male

DRUGS (1)
  1. CARTIA XT [Suspect]
     Active Substance: DILTIAZEM HYDROCHLORIDE
     Indication: HEART RATE INCREASED
     Dosage: 125 MILLIGRAM DAILY;
     Route: 048
     Dates: start: 20170515

REACTIONS (5)
  - Pruritus [Unknown]
  - Amnesia [Unknown]
  - Rash macular [Unknown]
  - Confusional state [Unknown]
  - Rash vesicular [Unknown]

NARRATIVE: CASE EVENT DATE: 2017
